FAERS Safety Report 11342854 (Version 1)
Quarter: 2015Q3

REPORT INFORMATION
  Report Type: Spontaneous
  Country: FR (occurrence: FR)
  Receive Date: 20150805
  Receipt Date: 20150805
  Transmission Date: 20151125
  Serious: Yes (Life-Threatening, Other)
  Sender: FDA-Public Use
  Company Number: FR-BAXTER-2015BAX041517

PATIENT
  Age: 76 Year
  Sex: Female

DRUGS (11)
  1. KETAMINE RENAUDIN [Suspect]
     Active Substance: KETAMINE
     Indication: PRODUCT USED FOR UNKNOWN INDICATION
     Route: 042
     Dates: start: 20150710, end: 20150710
  2. ATRACURIUM HOSPIRA [Suspect]
     Active Substance: ATRACURIUM
     Indication: PRODUCT USED FOR UNKNOWN INDICATION
     Route: 042
     Dates: start: 20150710, end: 20150710
  3. CEFAMANDOLE BASE [Suspect]
     Active Substance: CEFAMANDOLE
     Indication: PRODUCT USED FOR UNKNOWN INDICATION
     Route: 042
     Dates: start: 20150710, end: 20150710
  4. SUFENTANIL MERCK [Suspect]
     Active Substance: SUFENTANIL
     Indication: PRODUCT USED FOR UNKNOWN INDICATION
     Route: 042
     Dates: start: 20150710, end: 20150710
  5. PROPOFOL. [Suspect]
     Active Substance: PROPOFOL
     Indication: PRODUCT USED FOR UNKNOWN INDICATION
     Route: 042
     Dates: start: 20150710, end: 20150710
  6. ACUPAN [Suspect]
     Active Substance: NEFOPAM HYDROCHLORIDE
     Indication: PROCEDURAL PAIN
     Route: 042
     Dates: start: 20150710, end: 20150710
  7. SUPRANE [Suspect]
     Active Substance: DESFLURANE
     Indication: PRODUCT USED FOR UNKNOWN INDICATION
     Route: 055
     Dates: start: 20150710, end: 20150710
  8. EXACYL [Suspect]
     Active Substance: TRANEXAMIC ACID
     Indication: PRODUCT USED FOR UNKNOWN INDICATION
     Route: 042
     Dates: start: 20150710, end: 20150710
  9. MORPHINE [Suspect]
     Active Substance: MORPHINE
     Indication: PROCEDURAL PAIN
     Route: 042
     Dates: start: 20150710, end: 20150710
  10. DROLEPTAN [Suspect]
     Active Substance: DROPERIDOL
     Indication: PROCEDURAL PAIN
     Route: 042
     Dates: start: 20150710, end: 20150710
  11. DOLIPRANE [Concomitant]
     Active Substance: ACETAMINOPHEN
     Indication: DRUG THERAPY
     Route: 065

REACTIONS (9)
  - Lactic acidosis [Unknown]
  - Pancreatitis acute [Recovering/Resolving]
  - Hepatocellular injury [Unknown]
  - Renal failure [Unknown]
  - Intestinal obstruction [Unknown]
  - Respiratory failure [Unknown]
  - Condition aggravated [Unknown]
  - Post procedural infection [Recovering/Resolving]
  - Neuromyopathy [Unknown]

NARRATIVE: CASE EVENT DATE: 20150710
